FAERS Safety Report 9474867 (Version 1)
Quarter: 2013Q3

REPORT INFORMATION
  Report Type: Spontaneous
  Country: IT (occurrence: IT)
  Receive Date: 20130823
  Receipt Date: 20130823
  Transmission Date: 20140515
  Serious: Yes (Other)
  Sender: FDA-Public Use
  Company Number: IT-ACTAVIS-2013-15297

PATIENT
  Age: 45 Year
  Sex: Male

DRUGS (1)
  1. ALPRAZOLAM (UNKNOWN) [Suspect]
     Indication: DEPRESSION
     Dosage: 10 DF, UNKNOWN
     Route: 048
     Dates: start: 20130202, end: 20130202

REACTIONS (3)
  - Overdose [Recovered/Resolved]
  - Sopor [Recovered/Resolved]
  - Intentional drug misuse [Recovered/Resolved]
